FAERS Safety Report 17601896 (Version 1)
Quarter: 2020Q1

REPORT INFORMATION
  Report Type: Spontaneous
  Country: AU (occurrence: AU)
  Receive Date: 20200331
  Receipt Date: 20200331
  Transmission Date: 20200409
  Serious: Yes (Other)
  Sender: FDA-Public Use
  Company Number: AU-SA-2020SA072320

PATIENT
  Age: 57 Year
  Sex: Female

DRUGS (1)
  1. FEXOFENADINE [Suspect]
     Active Substance: FEXOFENADINE HYDROCHLORIDE
     Indication: URTICARIA
     Dosage: 1 DF, QD (A TABLET EVERY EVENING)
     Route: 048

REACTIONS (3)
  - Skin discolouration [Recovered/Resolved]
  - Heart rate irregular [Recovered/Resolved]
  - Malaise [Recovered/Resolved]
